FAERS Safety Report 26019959 (Version 1)
Quarter: 2025Q4

REPORT INFORMATION
  Report Type: Spontaneous
  Country: EU (occurrence: EU)
  Receive Date: 20251110
  Receipt Date: 20251110
  Transmission Date: 20260118
  Serious: Yes (Other)
  Sender: SANDOZ
  Company Number: EU-002147023-PHHY2013SK008786

PATIENT
  Age: 25 Year
  Sex: Female

DRUGS (8)
  1. AZATHIOPRINE [Suspect]
     Active Substance: AZATHIOPRINE
     Indication: Takayasu^s arteritis
     Dosage: 50 MG/DAY
     Route: 065
  2. CYCLOSPORINE [Suspect]
     Active Substance: CYCLOSPORINE
     Indication: Takayasu^s arteritis
     Dosage: 2 MG/KG, UNK
     Route: 065
  3. CYCLOPHOSPHAMIDE [Suspect]
     Active Substance: CYCLOPHOSPHAMIDE
     Indication: Takayasu^s arteritis
     Dosage: 1000 MG/M2 (MG/M2),  PULSE THERAPY
     Route: 042
  4. CYCLOPHOSPHAMIDE [Suspect]
     Active Substance: CYCLOPHOSPHAMIDE
     Indication: Takayasu^s arteritis
     Dosage: 100-150 MG/DAY
     Route: 065
  5. METHOTREXATE [Suspect]
     Active Substance: METHOTREXATE
     Indication: Takayasu^s arteritis
     Dosage: 10-15 MG PER WEEK
     Route: 065
  6. PREDNISONE [Concomitant]
     Active Substance: PREDNISONE
     Indication: Takayasu^s arteritis
     Dosage: 60 MG, QD,  UNCLEAR IF PATIENT WAS RECEIVING DRUG AT  TIME OF ADR ONSET
     Route: 048
  7. PREDNISONE [Concomitant]
     Active Substance: PREDNISONE
     Indication: Takayasu^s arteritis
     Dosage: 20-40 MG/DAY, DRUG CONTINUED,UNCLEAR IF  PATIENT WAS RECEIVING DRUG AT TIME OF ADR  ONSET
     Route: 048
  8. SOLU-MEDROL [Concomitant]
     Active Substance: METHYLPREDNISOLONE SODIUM SUCCINATE
     Indication: Takayasu^s arteritis
     Dosage: 3750 MG,  PULSE THERAPY,  UNCLEAR IF PATIENT WAS RECEIVING DRUG AT  TIME OF ADR ONSET
     Route: 065

REACTIONS (7)
  - Alopecia [Unknown]
  - Hepatic enzyme increased [Unknown]
  - Toxicity to various agents [Unknown]
  - Nephropathy toxic [Unknown]
  - Hypertension [Unknown]
  - Gastrointestinal disorder [Unknown]
  - Drug ineffective [Unknown]
